FAERS Safety Report 9166005 (Version 3)
Quarter: 2013Q4

REPORT INFORMATION
  Report Type: Spontaneous
  Country: FR (occurrence: FR)
  Receive Date: 20130315
  Receipt Date: 20131010
  Transmission Date: 20140711
  Serious: Yes (Hospitalization, Other)
  Sender: FDA-Public Use
  Company Number: FR-ASTRAZENECA-2013SE16336

PATIENT
  Age: 35 Year
  Sex: Female

DRUGS (4)
  1. XEROQUEL [Suspect]
     Route: 048
  2. UNSPECIFIED BENZODIAZEPINE [Suspect]
     Route: 065
  3. TERCIAN [Concomitant]
     Route: 048
  4. TEMESTA [Concomitant]
     Route: 048

REACTIONS (1)
  - Grand mal convulsion [Recovered/Resolved]
